FAERS Safety Report 5370920-2 (Version None)
Quarter: 2007Q2

REPORT INFORMATION
  Report Type: 
  Country: None (occurrence: None)
  Receive Date: 20070626
  Receipt Date: 20070611
  Transmission Date: 20071010
  Serious: Yes (Other)
  Sender: FDA-Public Use
  Company Number: BR-PFIZER INC-2007051046

PATIENT
  Age: 63 Year
  Sex: Male

DRUGS (1)
  1. VIRACEPT [Suspect]
     Indication: HIV INFECTION
     Dosage: DAILY DOSE:250MG
     Route: 048
     Dates: start: 20020615, end: 20060615

REACTIONS (2)
  - ABDOMINAL PAIN UPPER [None]
  - OESOPHAGEAL CARCINOMA [None]
